FAERS Safety Report 5366857-5 (Version None)
Quarter: 2007Q2

REPORT INFORMATION
  Report Type: 
  Country: None (occurrence: None)
  Receive Date: 20070622
  Receipt Date: 20061121
  Transmission Date: 20071010
  Serious: No
  Sender: FDA-Public Use
  Company Number: US-ASTRAZENECA-2006UW25868

PATIENT
  Sex: Female

DRUGS (4)
  1. RHINOCORT [Suspect]
     Indication: SINUSITIS
     Dosage: 2 SPRAYS
     Route: 045
  2. NORVASC [Concomitant]
  3. CELEBREX [Concomitant]
  4. HYDROCHLOROTHIAZIDE [Concomitant]

REACTIONS (1)
  - BLOOD GLUCOSE INCREASED [None]
